FAERS Safety Report 5584998-4 (Version None)
Quarter: 2008Q1

REPORT INFORMATION
  Report Type: 
  Country: None (occurrence: None)
  Receive Date: 20080107
  Receipt Date: 20080107
  Transmission Date: 20080703
  Serious: Yes (Hospitalization)
  Sender: FDA-Public Use
  Company Number: None

PATIENT
  Age: 41 Year
  Sex: Female
  Weight: 78.5 kg

DRUGS (1)
  1. MEPERIDINE HCL [Suspect]
     Indication: ABDOMINAL PAIN
     Dosage: 10MG  WITH 10 MINS DELAY  IV
     Route: 042

REACTIONS (1)
  - CONVULSION [None]
